FAERS Safety Report 5822021-4 (Version None)
Quarter: 2008Q3

REPORT INFORMATION
  Report Type: 
  Country: None (occurrence: None)
  Receive Date: 20080724
  Receipt Date: 20080717
  Transmission Date: 20090109
  Serious: Yes (Hospitalization, Other)
  Sender: FDA-Public Use
  Company Number: US-AMGEN-QUU288474

PATIENT
  Age: 51 Year
  Sex: Female

DRUGS (8)
  1. ENBREL [Suspect]
     Indication: RHEUMATOID ARTHRITIS
     Route: 058
     Dates: start: 20070601
  2. ALEVE [Concomitant]
  3. PLAQUENIL [Concomitant]
  4. PREDNISONE TAB [Concomitant]
     Route: 048
  5. ARAVA [Concomitant]
     Dates: start: 20010101
  6. VICODIN [Concomitant]
  7. DARVOCET-N 100 [Concomitant]
  8. CELEBREX [Concomitant]
     Dates: start: 20080501

REACTIONS (24)
  - ABDOMINAL DISCOMFORT [None]
  - ASTHENIA [None]
  - ATAXIA [None]
  - BLOOD POTASSIUM DECREASED [None]
  - CATARACT [None]
  - CEREBELLAR ATAXIA [None]
  - CONSTIPATION [None]
  - CYSTITIS KLEBSIELLA [None]
  - DECREASED APPETITE [None]
  - DIARRHOEA [None]
  - DIZZINESS [None]
  - ENCEPHALITIS [None]
  - GASTRITIS [None]
  - GASTROOESOPHAGEAL SPHINCTER INSUFFICIENCY [None]
  - HAEMATEMESIS [None]
  - HIATUS HERNIA [None]
  - HYPERTENSION [None]
  - MALAISE [None]
  - NAUSEA [None]
  - NYSTAGMUS [None]
  - OESOPHAGITIS [None]
  - SCIATICA [None]
  - TRANSAMINASES INCREASED [None]
  - VERTIGO [None]
